FAERS Safety Report 5638123-1 (Version None)
Quarter: 2008Q1

REPORT INFORMATION
  Report Type: 
  Country: None (occurrence: None)
  Receive Date: 20080221
  Receipt Date: 20080211
  Transmission Date: 20080703
  Serious: Yes (Other)
  Sender: FDA-Public Use
  Company Number: 2008S1002291

PATIENT
  Age: 78 Year
  Sex: Male
  Weight: 56.7 kg

DRUGS (6)
  1. PHENYTOIN SODIUM [Suspect]
     Indication: CONVULSION
     Dosage: 100 MG; 3 TIMES A DAY; 100 MG; 4 TIMES A DAY
     Dates: start: 20050101, end: 20070919
  2. PHENYTOIN SODIUM [Suspect]
     Indication: CONVULSION
     Dosage: 100 MG; 3 TIMES A DAY; 100 MG; 4 TIMES A DAY
     Dates: start: 20070929
  3. DILANTIN-125 [Suspect]
     Indication: CONVULSION
  4. OMEPRAZOLE [Concomitant]
  5. ARICEPT [Concomitant]
  6. COUMADIN [Concomitant]

REACTIONS (5)
  - ANTICONVULSANT DRUG LEVEL DECREASED [None]
  - CARDIAC PACEMAKER INSERTION [None]
  - CONVULSION [None]
  - THERAPY CESSATION [None]
  - WEIGHT DECREASED [None]
